FAERS Safety Report 4691045-5 (Version None)
Quarter: 2005Q2

REPORT INFORMATION
  Report Type: 
  Country: None (occurrence: None)
  Receive Date: 20050615
  Receipt Date: 20050520
  Transmission Date: 20051028
  Serious: Yes (Other)
  Sender: FDA-Public Use
  Company Number: 2005AP03042

PATIENT
  Age: 38 Year
  Sex: Female

DRUGS (5)
  1. ANAPEINE [Suspect]
     Indication: ANALGESIC EFFECT
     Route: 008
     Dates: start: 20050428, end: 20050430
  2. DROLEPTAN [Concomitant]
     Indication: ANAESTHESIA
     Dates: start: 20050428, end: 20050430
  3. ISOTONIC SODIUM CHLORIDE SOLUTION [Concomitant]
     Dates: start: 20050428, end: 20050430
  4. SOLITA-T NO.3 [Concomitant]
     Indication: SUBSTITUTION THERAPY
     Dates: start: 20050428
  5. PENTCILLIN [Concomitant]
     Dates: start: 20050428

REACTIONS (1)
  - TONGUE PARALYSIS [None]
